FAERS Safety Report 14185171 (Version 5)
Quarter: 2018Q2

REPORT INFORMATION
  Report Type: Report from Study
  Country: US (occurrence: US)
  Receive Date: 20171114
  Receipt Date: 20180502
  Transmission Date: 20180711
  Serious: Yes (Other)
  Sender: FDA-Public Use
  Company Number: US-ROCHE-2018425

PATIENT
  Age: 63 Year
  Sex: Female
  Weight: 68.2 kg

DRUGS (16)
  1. DELTASONE [Concomitant]
     Active Substance: PREDNISONE
     Dosage: TAKE ACCORDING TO STEROID TAPER SCHEDULE
     Route: 048
     Dates: start: 20170908
  2. ZOLOFT [Concomitant]
     Active Substance: SERTRALINE HYDROCHLORIDE
     Dosage: EVERY MORNING
     Route: 048
  3. ALEVE PM [Concomitant]
     Active Substance: DIPHENHYDRAMINE HYDROCHLORIDE\NAPROXEN SODIUM
     Dosage: 220-25 MG TABLET
     Route: 048
  4. LOVENOX [Concomitant]
     Active Substance: ENOXAPARIN SODIUM
     Dosage: INJECT UNDER THE SKIN
     Route: 065
     Dates: start: 20170823
  5. ALBUTEROL SULFATE. [Concomitant]
     Active Substance: ALBUTEROL SULFATE
     Route: 065
  6. KLOR-CON M20 [Concomitant]
     Active Substance: POTASSIUM CHLORIDE
     Route: 048
     Dates: start: 20170823
  7. CREON [Concomitant]
     Active Substance: PANCRELIPASE AMYLASE\PANCRELIPASE LIPASE\PANCRELIPASE PROTEASE
     Dosage: 12,000 UNITS- 38,000 UNITS- 60,000 UNITS CAPSULE ?2-4 CAPSULES (24,000-48,000 UNITS) BY MOUTH 3 (THR
     Route: 048
     Dates: start: 20170809
  8. MEPRON (UNITED STATES) [Concomitant]
     Dosage: SUSPENSION BY MOUTH DAILY WITH BREAKFAST
     Route: 048
     Dates: start: 20170908
  9. ZOFRAN [Concomitant]
     Active Substance: ONDANSETRON HYDROCHLORIDE
     Indication: NAUSEA
     Route: 048
     Dates: start: 20170623
  10. PREVACID [Concomitant]
     Active Substance: LANSOPRAZOLE
     Route: 048
  11. LANREOTIDE [Concomitant]
     Active Substance: LANREOTIDE
     Route: 065
     Dates: start: 20170519
  12. ATEZOLIZUMAB. [Suspect]
     Active Substance: ATEZOLIZUMAB
     Indication: PANCREATIC NEUROENDOCRINE TUMOUR
     Dosage: DAY 1 OF EACH 21-DAY CYCLE?LAST DOSE WAS ON 30/JUN/2017.
     Route: 042
  13. NORCO [Concomitant]
     Active Substance: ACETAMINOPHEN\HYDROCODONE BITARTRATE
     Indication: PAIN
     Dosage: 5 MG- 325 MG PER TABLET
     Route: 048
  14. BEVACIZUMAB. [Suspect]
     Active Substance: BEVACIZUMAB
     Indication: PANCREATIC NEUROENDOCRINE TUMOUR
     Dosage: DAY 1 OF EACH 21-DAY CYCLE?LAST DOSE WAS ON 30/JUN/2017.
     Route: 042
  15. CREON [Concomitant]
     Active Substance: PANCRELIPASE AMYLASE\PANCRELIPASE LIPASE\PANCRELIPASE PROTEASE
     Dosage: 12,000 UNITS- 38,000 UNITS- 60,000 UNITS CAPSULE ?2-4 CAPSULES (36,000 UNITS) BY MOUTH 3 (THREE) TIM
     Route: 048
     Dates: start: 20170310
  16. CREON [Concomitant]
     Active Substance: PANCRELIPASE AMYLASE\PANCRELIPASE LIPASE\PANCRELIPASE PROTEASE
     Dosage: 24,000 UNITS- 76,000 UNITS- 120,000 UNITS CAPSULE ?(72,000 UNITS) BY MOUTH, THREE TIMES A DAY WITH M
     Route: 048
     Dates: start: 20170809

REACTIONS (4)
  - Hepatobiliary disease [Unknown]
  - Colitis [Unknown]
  - Diarrhoea [Recovered/Resolved]
  - Embolism [Unknown]

NARRATIVE: CASE EVENT DATE: 20170707
